FAERS Safety Report 13021209 (Version 1)
Quarter: 2016Q4

REPORT INFORMATION
  Report Type: Report from Study
  Country: US (occurrence: US)
  Receive Date: 20161213
  Receipt Date: 20161213
  Transmission Date: 20170207
  Serious: Yes (Other)
  Sender: FDA-Public Use
  Company Number: US-ROCHE-1866094

PATIENT
  Age: 73 Year
  Sex: Male
  Weight: 82.1 kg

DRUGS (6)
  1. BEVACIZUMAB [Suspect]
     Active Substance: BEVACIZUMAB
     Indication: MALIGNANT MELANOMA
     Route: 042
     Dates: start: 20081229
  2. BEVACIZUMAB [Suspect]
     Active Substance: BEVACIZUMAB
     Route: 042
     Dates: start: 20090303, end: 20090330
  3. DASATINIB [Suspect]
     Active Substance: DASATINIB
     Indication: MALIGNANT MELANOMA
     Route: 048
     Dates: start: 20081229
  4. BEVACIZUMAB [Suspect]
     Active Substance: BEVACIZUMAB
     Route: 042
     Dates: start: 20090126
  5. DASATINIB [Suspect]
     Active Substance: DASATINIB
     Route: 048
     Dates: start: 20090126
  6. DASATINIB [Suspect]
     Active Substance: DASATINIB
     Route: 048
     Dates: start: 20090303, end: 20090330

REACTIONS (1)
  - Pleural effusion [Unknown]
